FAERS Safety Report 7171229-7 (Version None)
Quarter: 2010Q4

REPORT INFORMATION
  Report Type: 
  Country: None (occurrence: None)
  Receive Date: 20101123
  Receipt Date: 20100811
  Transmission Date: 20110411
  Serious: No
  Sender: FDA-Public Use
  Company Number: 016411

PATIENT
  Sex: Female
  Weight: 153 kg

DRUGS (2)
  1. CIMZIA [Suspect]
     Dosage: DOSAGE UNSPECIFIED SUBCUTANEOUS
     Route: 058
     Dates: start: 20100315
  2. PREDNISONE [Suspect]

REACTIONS (8)
  - ADRENAL DISORDER [None]
  - ARTHRALGIA [None]
  - DIARRHOEA [None]
  - DYSPHAGIA [None]
  - INCONTINENCE [None]
  - MALAISE [None]
  - MUSCULOSKELETAL DISCOMFORT [None]
  - WEIGHT INCREASED [None]
